FAERS Safety Report 4627233-3 (Version None)
Quarter: 2005Q2

REPORT INFORMATION
  Report Type: 
  Country: None (occurrence: None)
  Receive Date: 20050401
  Receipt Date: 20050401
  Transmission Date: 20051028
  Serious: Yes (Death)
  Sender: FDA-Public Use
  Company Number: None

PATIENT
  Age: 82 Year
  Sex: Female
  Weight: 65.6 kg

DRUGS (1)
  1. LOVENOX [Suspect]
     Indication: ATRIAL FLUTTER
     Dosage: 1MG/KG Q 12 HOURS SUBCUTANEOUS
     Route: 058
     Dates: start: 20050224, end: 20050303

REACTIONS (5)
  - ABDOMINAL HAEMATOMA [None]
  - CARDIAC ARREST [None]
  - CIRCULATORY COLLAPSE [None]
  - INTRA-ABDOMINAL HAEMORRHAGE [None]
  - MUSCLE HAEMORRHAGE [None]
